FAERS Safety Report 7925258-3 (Version None)
Quarter: 2011Q4

REPORT INFORMATION
  Report Type: 
  Country: None (occurrence: None)
  Receive Date: 20111118
  Receipt Date: 20110404
  Transmission Date: 20120403
  Serious: No
  Sender: FDA-Public Use
  Company Number: US-AMGEN-USASP2011017754

PATIENT
  Age: 44 Year
  Sex: Male

DRUGS (1)
  1. ENBREL [Suspect]
     Indication: ANKYLOSING SPONDYLITIS
     Dosage: 25 MG, 2 TIMES/WK
     Dates: start: 20010101

REACTIONS (6)
  - HEADACHE [None]
  - NASOPHARYNGITIS [None]
  - BACK PAIN [None]
  - INSOMNIA [None]
  - FATIGUE [None]
  - ARTHRALGIA [None]
